FAERS Safety Report 12828468 (Version 3)
Quarter: 2016Q4

REPORT INFORMATION
  Report Type: Spontaneous
  Country: IT (occurrence: IT)
  Receive Date: 20161007
  Receipt Date: 20161026
  Transmission Date: 20170207
  Serious: Yes (Other)
  Sender: FDA-Public Use
  Company Number: IT-TEVA-698773ACC

PATIENT
  Sex: Female

DRUGS (1)
  1. LANSOPRAZOLO TEVA ITALIA [Suspect]
     Active Substance: LANSOPRAZOLE
     Dosage: IN THE MORNING

REACTIONS (3)
  - Pruritus [Recovered/Resolved]
  - Urticaria [Recovered/Resolved]
  - Throat tightness [Recovered/Resolved]
